FAERS Safety Report 9175746 (Version 1)
Quarter: 2012Q4

REPORT INFORMATION
  Report Type: 
  Country: US (occurrence: US)
  Receive Date: 20120911
  Receipt Date: 20120911
  Transmission Date: 20130627
  Serious: No
  Sender: FDA-Public Use
  Company Number: US-RB-043773-12

PATIENT
  Sex: Female

DRUGS (5)
  1. SUBOXONE TABLET [Suspect]
     Indication: DRUG DEPENDENCE
     Dosage: 2 1/2 tablets daily
     Route: 065
     Dates: start: 201107, end: 201201
  2. SUBOXONE TABLET [Suspect]
     Dosage: Tapered dosage schedule
     Route: 060
     Dates: start: 201201, end: 201202
  3. DILAUDID [Suspect]
     Indication: PAIN
     Dosage: Unknown dosage details
     Route: 048
     Dates: start: 201110, end: 201201
  4. OXYCODONE [Suspect]
     Indication: PAIN
     Dosage: Dosage details unknown
     Route: 048
     Dates: start: 201201
  5. KLONOPIN [Suspect]
     Indication: SLEEP DISORDER
     Dosage: Unknown dosage details
     Route: 048
     Dates: start: 201110, end: 201110

REACTIONS (8)
  - Wrong technique in drug usage process [Recovered/Resolved]
  - Fall [Recovered/Resolved]
  - Foot fracture [Recovered/Resolved]
  - Drug abuse [Recovered/Resolved]
  - Dizziness [Recovered/Resolved]
  - Fall [Recovered/Resolved]
  - Fractured coccyx [Recovered/Resolved]
  - Impaired healing [Recovered/Resolved]
